FAERS Safety Report 10384383 (Version 1)
Quarter: 2014Q3

REPORT INFORMATION
  Report Type: Spontaneous
  Country: IT (occurrence: IT)
  Receive Date: 20140814
  Receipt Date: 20140814
  Transmission Date: 20150326
  Serious: Yes (Hospitalization, Other)
  Sender: FDA-Public Use
  Company Number: IT-PFIZER INC-2014226155

PATIENT
  Age: 87 Year
  Sex: Male

DRUGS (2)
  1. CARDIOASPIRIN [Suspect]
     Active Substance: ASPIRIN
     Indication: THROMBOSIS PROPHYLAXIS
     Dosage: 1 DF, 1X/DAY
     Route: 048
     Dates: start: 20140101, end: 20140502
  2. MEDROL [Suspect]
     Active Substance: METHYLPREDNISOLONE
     Indication: BRONCHITIS
     Dosage: 1 DF, 1X/DAY
     Route: 048
     Dates: start: 20140422, end: 20140502

REACTIONS (7)
  - Pallor [Unknown]
  - Loss of consciousness [Unknown]
  - Gastrointestinal haemorrhage [Unknown]
  - Anaemia [Unknown]
  - Rectal haemorrhage [Unknown]
  - Syncope [Unknown]
  - Cold sweat [Unknown]

NARRATIVE: CASE EVENT DATE: 20140502
